FAERS Safety Report 5022534-1 (Version None)
Quarter: 2006Q2

REPORT INFORMATION
  Report Type: 
  Country: None (occurrence: None)
  Receive Date: 20060605
  Receipt Date: 20060523
  Transmission Date: 20061013
  Serious: Yes (Congenital Anomaly)
  Sender: FDA-Public Use
  Company Number: GB200605005028

PATIENT

DRUGS (2)
  1. CYMBALTA [Suspect]
     Dosage: TRANSPLACENTAL
     Route: 064
  2. QUETIAPINE FUMARATE [Concomitant]

REACTIONS (5)
  - ABORTION INDUCED [None]
  - CHORIOAMNIONITIS [None]
  - DRUG EXPOSURE DURING PREGNANCY [None]
  - FOETAL GROWTH RETARDATION [None]
  - OLIGOHYDRAMNIOS [None]
